FAERS Safety Report 7241410-7 (Version None)
Quarter: 2011Q1

REPORT INFORMATION
  Report Type: 
  Country: None (occurrence: None)
  Receive Date: 20110124
  Receipt Date: 20110113
  Transmission Date: 20110831
  Serious: Yes (Other)
  Sender: FDA-Public Use
  Company Number: CA-JNJFOC-20110104570

PATIENT
  Sex: Male
  Weight: 69 kg

DRUGS (3)
  1. COCAINE [Concomitant]
     Dosage: 7-8 TIMES IN PAST MONTH
  2. REMICADE [Suspect]
     Route: 042
  3. REMICADE [Suspect]
     Indication: PSORIASIS
     Route: 042

REACTIONS (13)
  - ELECTROCARDIOGRAM PR PROLONGATION [None]
  - NERVOUSNESS [None]
  - ABSCESS [None]
  - TREMOR [None]
  - TACHYARRHYTHMIA [None]
  - INFUSION RELATED REACTION [None]
  - RESTLESSNESS [None]
  - FLUSHING [None]
  - BUNDLE BRANCH BLOCK RIGHT [None]
  - PRESYNCOPE [None]
  - HYPERTENSION [None]
  - HYPERVENTILATION [None]
  - RASH [None]
